FAERS Safety Report 6227537-7 (Version None)
Quarter: 2009Q2

REPORT INFORMATION
  Report Type: 
  Country: None (occurrence: None)
  Receive Date: 20090612
  Receipt Date: 20090603
  Transmission Date: 20091009
  Serious: Yes (Other)
  Sender: FDA-Public Use
  Company Number: BR-ROCHE-557739

PATIENT
  Sex: Male
  Weight: 64 kg

DRUGS (2)
  1. RIVOTRIL [Suspect]
     Indication: PANIC ATTACK
     Dosage: OTHER INDICATION: ANXIETY
     Route: 048
     Dates: start: 20070101
  2. APRAZ [Concomitant]
     Indication: ANXIETY
     Dosage: OTHER INDICATION: DEPRESSION.
     Route: 048
     Dates: start: 20070101

REACTIONS (18)
  - ABDOMINAL PAIN [None]
  - ALOPECIA [None]
  - AMNESIA [None]
  - BURNING SENSATION [None]
  - CHEST PAIN [None]
  - DRUG INEFFECTIVE [None]
  - DRY MOUTH [None]
  - ERYTHEMA [None]
  - FATIGUE [None]
  - HEART RATE INCREASED [None]
  - INCREASED VISCOSITY OF BRONCHIAL SECRETION [None]
  - MITRAL VALVE PROLAPSE [None]
  - MUSCULAR WEAKNESS [None]
  - OCULAR HYPERAEMIA [None]
  - PRURITUS [None]
  - SALIVARY HYPERSECRETION [None]
  - TACHYCARDIA [None]
  - THIRST [None]
